FAERS Safety Report 8982943 (Version 1)
Quarter: 2012Q4

REPORT INFORMATION
  Report Type: 
  Country: GB (occurrence: GB)
  Receive Date: 20121224
  Receipt Date: 20121224
  Transmission Date: 20130627
  Serious: Yes (Life-Threatening, Hospitalization)
  Sender: FDA-Public Use
  Company Number: PHHY2012GB118170

PATIENT
  Age: 81 Year
  Sex: Male
  Weight: 80 kg

DRUGS (5)
  1. OMEPRAZOLE [Suspect]
     Indication: UPPER GASTROINTESTINAL HAEMORRHAGE
     Dosage: 40 mg, QD
     Route: 048
     Dates: start: 20120824, end: 20121118
  2. OMEPRAZOLE [Suspect]
     Dosage: 20 mg, QD
     Route: 048
     Dates: start: 20121119, end: 20121123
  3. BISOPROLOL [Concomitant]
     Indication: HYPERTENSION
     Dosage: 5 mg, QD
     Route: 048
  4. METHYLDOPA [Concomitant]
     Indication: HYPERTENSION
     Dosage: 125 mg, BID
     Route: 048
     Dates: start: 20120801
  5. CLOPIDOGREL [Concomitant]
     Indication: TRANSIENT ISCHAEMIC ATTACK
     Route: 048

REACTIONS (2)
  - Renal failure acute [Recovering/Resolving]
  - Tubulointerstitial nephritis [Recovering/Resolving]
